FAERS Safety Report 16356582 (Version 1)
Quarter: 2019Q2

REPORT INFORMATION
  Report Type: Spontaneous
  Country: US (occurrence: US)
  Receive Date: 20190527
  Receipt Date: 20190527
  Transmission Date: 20190711
  Serious: Yes (Hospitalization, Other)
  Sender: FDA-Public Use
  Company Number: US-SA-2019SA140334

PATIENT
  Age: 59 Year
  Sex: Female

DRUGS (1)
  1. TELITHROMYCIN [Suspect]
     Active Substance: TELITHROMYCIN
     Indication: ANTIBIOTIC THERAPY

REACTIONS (2)
  - Acute hepatic failure [Unknown]
  - Drug-induced liver injury [Unknown]
